FAERS Safety Report 18335042 (Version 3)
Quarter: 2020Q4

REPORT INFORMATION
  Report Type: Spontaneous
  Country: US (occurrence: US)
  Receive Date: 20201001
  Receipt Date: 20201103
  Transmission Date: 20210113
  Serious: Yes (Other)
  Sender: FDA-Public Use
  Company Number: US-AMERICAN REGENT INC-2020002013

PATIENT
  Age: 39 Year
  Sex: Female

DRUGS (3)
  1. ESTRADIOL VALERATE INJECTION, USP (0870-05) [Suspect]
     Active Substance: ESTRADIOL VALERATE
     Dosage: 0.1 ML (2 MG), ONCE WEEKLY
     Route: 030
     Dates: start: 20200922
  2. ESTRADIOL VALERATE INJECTION, USP (0870-05) [Suspect]
     Active Substance: ESTRADIOL VALERATE
     Dosage: 0.1 ML (2 MG), ONCE WEEKLY
     Route: 030
     Dates: start: 2020, end: 20200915
  3. ESTRADIOL VALERATE INJECTION, USP (0870-05) [Suspect]
     Active Substance: ESTRADIOL VALERATE
     Indication: HORMONE REPLACEMENT THERAPY
     Dosage: 0.15 ML (3 MG), ONCE WEEKLY
     Route: 030
     Dates: start: 2020, end: 2020

REACTIONS (4)
  - Foreign body [Recovered/Resolved]
  - Injection site bruising [Recovered/Resolved]
  - Injection site pain [Recovered/Resolved]
  - Product administered at inappropriate site [Unknown]

NARRATIVE: CASE EVENT DATE: 2020
